FAERS Safety Report 7767117-5 (Version None)
Quarter: 2011Q3

REPORT INFORMATION
  Report Type: 
  Country: None (occurrence: None)
  Receive Date: 20110922
  Receipt Date: 20101013
  Transmission Date: 20111222
  Serious: No
  Sender: FDA-Public Use
  Company Number: US-ASTRAZENECA-2010SE29637

PATIENT
  Age: 22 Year
  Sex: Female
  Weight: 47.6 kg

DRUGS (3)
  1. SEROQUEL [Suspect]
     Indication: COMPULSIONS
     Route: 048
     Dates: start: 20080101
  2. SEROQUEL [Suspect]
     Indication: ANXIETY
     Route: 048
     Dates: start: 20080101
  3. SEROQUEL [Suspect]
     Indication: SOMNOLENCE
     Route: 048
     Dates: start: 20080101

REACTIONS (6)
  - DRY MOUTH [None]
  - DRUG WITHDRAWAL SYNDROME [None]
  - DRUG DOSE OMISSION [None]
  - INSOMNIA [None]
  - HYPERHIDROSIS [None]
  - ADVERSE DRUG REACTION [None]
